FAERS Safety Report 7775718 (Version 4)
Quarter: 2012Q4

REPORT INFORMATION
  Report Type: Report from Study
  Country: ES (occurrence: ES)
  Receive Date: 20110127
  Receipt Date: 20120905
  Transmission Date: 20130627
  Serious: Yes (Death, Life-Threatening, Hospitalization)
  Sender: FDA-Public Use
  Company Number: ES-BAYER-2011-008323

PATIENT
  Age: 57 Year
  Sex: Male

DRUGS (17)
  1. NEXAVAR [Suspect]
     Indication: HEPATIC NEOPLASM MALIGNANT
     Dosage: 800 mg, QD
     Route: 048
     Dates: start: 20100629, end: 20100709
  2. CELLCEPT [Concomitant]
     Dosage: Daily dose 2000 mg
     Dates: start: 20091117
  3. CELLCEPT [Concomitant]
     Dosage: Daily dose 1000 mg
  4. CERTICAN [Concomitant]
     Dosage: Daily dose 1.5 mg
     Dates: start: 20100625
  5. CLEXANE [Concomitant]
     Dosage: Daily dose 60 mg
     Dates: start: 20100624
  6. DEZACOR [Concomitant]
     Dosage: Daily dose 12 mg
     Dates: start: 20091117, end: 20100727
  7. DEZACOR [Concomitant]
     Dosage: Daily dose 9 mg
  8. FLUCONAZOL [Concomitant]
     Dosage: Daily dose 200 mg
     Dates: start: 20100624
  9. APIDRA [Concomitant]
     Dosage: UNK UNK, PRN
     Dates: start: 20091117
  10. LANTUS [Concomitant]
     Dosage: Daily dose 34 u
     Dates: start: 20100105
  11. LANTUS [Concomitant]
     Dosage: Daily dose 18 u
  12. LANTUS [Concomitant]
     Dosage: Daily dose 16 u
  13. PANTOPRAZOLE [Concomitant]
     Dosage: Daily dose 40 mg
     Dates: start: 20091117, end: 20100727
  14. PROGRAF [Concomitant]
     Dosage: Daily dose 2 mg
     Dates: start: 20091117
  15. IBUPROFENO [Concomitant]
     Dosage: Daily dose 1800 mg
     Dates: start: 20100728
  16. OMEPRAZOL [Concomitant]
     Dosage: Daily dose 20 mg
     Dates: start: 20100728
  17. TRANKIMAZIN [Concomitant]
     Dosage: Daily dose .5 mg
     Dates: start: 20100728

REACTIONS (3)
  - Cerebral haemorrhage [Recovered/Resolved]
  - Convulsion [Recovered/Resolved]
  - Hepatic cancer [Fatal]
